FAERS Safety Report 6505671-1 (Version None)
Quarter: 2009Q4

REPORT INFORMATION
  Report Type: 
  Country: None (occurrence: None)
  Receive Date: 20091218
  Receipt Date: 20091217
  Transmission Date: 20100525
  Serious: Yes (Hospitalization)
  Sender: FDA-Public Use
  Company Number: A0817456A

PATIENT
  Age: 42 Year
  Sex: Male

DRUGS (9)
  1. PROMACTA [Suspect]
     Indication: IDIOPATHIC THROMBOCYTOPENIC PURPURA
     Dosage: 50MCG PER DAY
     Route: 048
     Dates: start: 20090601, end: 20090701
  2. PREDNISONE [Concomitant]
  3. CYCLOSPORINE [Concomitant]
  4. DANAZOL [Concomitant]
  5. SEPTRA [Concomitant]
  6. ACYCLOVIR [Concomitant]
  7. ASPIRIN [Concomitant]
     Dosage: 81MG PER DAY
  8. THYROID REPLACEMENT [Concomitant]
  9. NEXIUM [Concomitant]

REACTIONS (7)
  - FATIGUE [None]
  - PERIPHERAL ARTERIAL OCCLUSIVE DISEASE [None]
  - PLATELET COUNT INCREASED [None]
  - SCAR [None]
  - SLEEP DISORDER [None]
  - SPLENECTOMY [None]
  - THROMBOCYTOSIS [None]
